FAERS Safety Report 4520261-8 (Version None)
Quarter: 2004Q4

REPORT INFORMATION
  Report Type: 
  Country: None (occurrence: None)
  Receive Date: 20041025
  Receipt Date: 20040823
  Transmission Date: 20050328
  Serious: Yes (Hospitalization)
  Sender: FDA-Public Use
  Company Number: USA040876723

PATIENT
  Sex: Female

DRUGS (2)
  1. SYMBYAX [Suspect]
  2. ALPRAZOLAM [Concomitant]

REACTIONS (2)
  - AGITATION [None]
  - ANXIETY [None]
